FAERS Safety Report 13514076 (Version 3)
Quarter: 2017Q3

REPORT INFORMATION
  Report Type: Spontaneous
  Country: US (occurrence: US)
  Receive Date: 20170504
  Receipt Date: 20170718
  Transmission Date: 20171127
  Serious: No
  Sender: FDA-Public Use
  Company Number: US-PFIZER INC-2017196369

PATIENT
  Age: 62 Year
  Sex: Female
  Weight: 85 kg

DRUGS (18)
  1. ADVILGEL [Concomitant]
     Active Substance: IBUPROFEN
     Indication: PAIN
     Dosage: 400 MG, 2X/DAY
     Route: 048
  2. LISINOPRIL. [Concomitant]
     Active Substance: LISINOPRIL
     Indication: BLOOD PRESSURE ABNORMAL
     Dosage: 10 MG, DAILY
     Route: 048
  3. LYRICA [Concomitant]
     Active Substance: PREGABALIN
     Dosage: UNK UNK, DAILY (TAKE 1 TO 2 CAPSULES)
     Route: 048
  4. ATORVASTATIN [Concomitant]
     Active Substance: ATORVASTATIN
     Indication: BLOOD CHOLESTEROL
     Dosage: UNK, 1X/DAY, (ONE-HALF TABLET ORALLY AT BEDTIME)
     Route: 048
  5. CENTRUM [Concomitant]
     Active Substance: VITAMINS
     Dosage: 1 DF, DAILY
     Route: 048
  6. KETOROLAC [Concomitant]
     Active Substance: KETOROLAC\KETOROLAC TROMETHAMINE
     Dosage: 1 GTT, 4X/DAY, (1 DROP IN INTO RIGHT EYE)
     Route: 047
  7. GABAPENTIN. [Suspect]
     Active Substance: GABAPENTIN
     Indication: DIABETIC NEUROPATHY
     Dosage: 100 MG, 1X/DAY AT NIGHT
     Route: 048
  8. ADVILGEL [Concomitant]
     Active Substance: IBUPROFEN
     Indication: INSOMNIA
  9. LANTUS [Concomitant]
     Active Substance: INSULIN GLARGINE
     Indication: DIABETES MELLITUS
     Dosage: 60 IU, 1X/DAY; AT NIGHT
     Route: 058
  10. ASPRIN [Concomitant]
     Active Substance: ASPIRIN
     Dosage: 81 MG, DAILY
     Route: 048
  11. PREDNISOLONE ACETATE. [Concomitant]
     Active Substance: PREDNISOLONE ACETATE
     Dosage: 1 GTT, 4X/DAY, (1 DROP IN RIGHT EYE)
     Route: 047
  12. OFLOXACIN. [Concomitant]
     Active Substance: OFLOXACIN
     Dosage: 0.3 %, 4X/DAY (FOR 1 WEEK AFTER SURGERY)
     Route: 047
  13. NOVOLOG [Concomitant]
     Active Substance: INSULIN ASPART
     Indication: DIABETES MELLITUS
     Dosage: SLIDING SCALE, INJECTION
  14. CENTRUM SILVER [Concomitant]
     Active Substance: MINERALS\VITAMINS
     Dosage: 1 DF, DAILY
     Route: 048
  15. GABAPENTIN. [Suspect]
     Active Substance: GABAPENTIN
     Dosage: 200 MG, 1X/DAY (BEDTIME)
     Route: 048
     Dates: start: 20170106, end: 20170519
  16. FUROSEMIDE. [Concomitant]
     Active Substance: FUROSEMIDE
     Dosage: 40 MG, AS NEEDED
     Route: 048
     Dates: start: 201605
  17. GABAPENTIN. [Suspect]
     Active Substance: GABAPENTIN
     Dosage: 200 MG, 1X/DAY AT NIGHT
     Route: 048
  18. FUROSEMIDE. [Concomitant]
     Active Substance: FUROSEMIDE
     Dosage: 40 MG, 2X/DAY (EVERY MORNING)
     Route: 048

REACTIONS (3)
  - Drug ineffective for unapproved indication [Unknown]
  - Diabetic neuropathy [Unknown]
  - Condition aggravated [Unknown]
